FAERS Safety Report 25642563 (Version 1)
Quarter: 2025Q3

REPORT INFORMATION
  Report Type: Spontaneous
  Country: US (occurrence: US)
  Receive Date: 20250805
  Receipt Date: 20250805
  Transmission Date: 20251021
  Serious: No
  Sender: CHIESI
  Company Number: US-CHIESI-2024CHF04380

PATIENT
  Age: 43 Year
  Sex: Male
  Weight: 143.5 kg

DRUGS (4)
  1. KENGREAL [Suspect]
     Active Substance: CANGRELOR
     Indication: Thrombosis prophylaxis
     Route: 042
     Dates: start: 20240709
  2. KENGREAL [Suspect]
     Active Substance: CANGRELOR
     Indication: Off label use
  3. ASPIRIN [Concomitant]
     Active Substance: ASPIRIN
     Indication: Product used for unknown indication
     Dosage: 161 MILLIGRAM, QD
  4. BRILINTA [Concomitant]
     Active Substance: TICAGRELOR
     Indication: Product used for unknown indication
     Dosage: 90 MILLIGRAM, BID
     Dates: end: 2024

REACTIONS (5)
  - Off label use [Unknown]
  - Off label use [Unknown]
  - Off label use [Unknown]
  - Off label use [Unknown]
  - Off label use [Unknown]

NARRATIVE: CASE EVENT DATE: 20240709
